FAERS Safety Report 5942457-0 (Version None)
Quarter: 2008Q4

REPORT INFORMATION
  Report Type: 
  Country: None (occurrence: None)
  Receive Date: 20081105
  Receipt Date: 20081028
  Transmission Date: 20090506
  Serious: Yes (Hospitalization)
  Sender: FDA-Public Use
  Company Number: JP-PFIZER INC-2008084911

PATIENT
  Sex: Female
  Weight: 41 kg

DRUGS (19)
  1. SU-011,248 [Suspect]
     Indication: RECTAL CANCER
     Route: 048
     Dates: start: 20080630, end: 20081001
  2. IRINOTECAN HYDROCHLORIDE [Suspect]
     Indication: RECTAL CANCER
     Route: 042
     Dates: start: 20080630, end: 20080922
  3. LEUCOVORIN CALCIUM [Suspect]
     Indication: RECTAL CANCER
     Route: 042
     Dates: start: 20080630, end: 20080922
  4. FLUOROURACIL [Suspect]
     Route: 042
     Dates: start: 20080630, end: 20080922
  5. FLUOROURACIL [Suspect]
     Dosage: TEXT:2550MG CONTINUOUS INFUSION
     Route: 042
     Dates: start: 20080630, end: 20080922
  6. GRANISETRON HCL [Concomitant]
     Route: 042
     Dates: start: 20080630, end: 20080922
  7. DEXAMETHASONE SODIUM PHOSPHATE [Concomitant]
     Route: 042
     Dates: start: 20080630, end: 20080922
  8. LOXOPROFEN SODIUM [Concomitant]
     Route: 048
     Dates: end: 20081008
  9. REBAMIPIDE [Concomitant]
     Route: 048
     Dates: end: 20081008
  10. BROTIZOLAM [Concomitant]
     Route: 048
  11. ZOLPIDEM TARTRATE [Concomitant]
     Route: 048
  12. MAGNESIUM OXIDE [Concomitant]
     Route: 048
  13. STREPTOCOCCUS FAECALIS [Concomitant]
     Route: 048
     Dates: start: 20080714, end: 20081008
  14. TRIAMCINOLONE ACETONIDE [Concomitant]
     Route: 048
     Dates: start: 20080809
  15. TRIAMCINOLONE ACETONIDE [Concomitant]
     Dates: start: 20080901
  16. DIMETHYL ISOPROPYLAZULENE [Concomitant]
     Route: 048
     Dates: start: 20080901, end: 20081008
  17. PYRIDOXAL PHOSPHATE [Concomitant]
     Route: 048
     Dates: start: 20080828, end: 20081008
  18. LIDOCAINE [Concomitant]
     Route: 048
     Dates: start: 20080901
  19. BETAMETHASONE VALERATE [Concomitant]
     Route: 061
     Dates: start: 20080908, end: 20081008

REACTIONS (1)
  - INTESTINAL OBSTRUCTION [None]
